FAERS Safety Report 5308792-4 (Version None)
Quarter: 2007Q2

REPORT INFORMATION
  Report Type: 
  Country: None (occurrence: None)
  Receive Date: 20070426
  Receipt Date: 20070411
  Transmission Date: 20071010
  Serious: Yes (Other)
  Sender: FDA-Public Use
  Company Number: US-SHR-US-2006-038150

PATIENT
  Age: 29 Year
  Sex: Female

DRUGS (1)
  1. BETASERON [Suspect]
     Dosage: 8 MIU, EVERY 2D
     Route: 058
     Dates: start: 20060118

REACTIONS (3)
  - BLADDER DISORDER [None]
  - HYPOAESTHESIA [None]
  - MUSCLE SPASTICITY [None]
